FAERS Safety Report 6218620-0 (Version None)
Quarter: 2009Q2

REPORT INFORMATION
  Report Type: 
  Country: None (occurrence: None)
  Receive Date: 20090608
  Receipt Date: 20090603
  Transmission Date: 20091009
  Serious: Yes (Life-Threatening, Hospitalization)
  Sender: FDA-Public Use
  Company Number: US-GILEAD-2009-0021855

PATIENT
  Sex: Male
  Weight: 67.192 kg

DRUGS (3)
  1. ATRIPLA [Suspect]
     Indication: HIV INFECTION
     Route: 048
     Dates: start: 20090109, end: 20090331
  2. N. O. XPLODE [Concomitant]
     Indication: SUPPLEMENTATION THERAPY
     Route: 048
     Dates: start: 20070101, end: 20080601
  3. N. O. XPLODE [Concomitant]
     Route: 048
     Dates: start: 20090319, end: 20090331

REACTIONS (1)
  - HEPATITIS ACUTE [None]
